FAERS Safety Report 7920272-6 (Version None)
Quarter: 2011Q4

REPORT INFORMATION
  Report Type: 
  Country: None (occurrence: None)
  Receive Date: 20111115
  Receipt Date: 20111031
  Transmission Date: 20120403
  Serious: Yes (Life-Threatening, Hospitalization)
  Sender: FDA-Public Use
  Company Number: DSA_48070_2011

PATIENT
  Age: 47 Year
  Sex: Female

DRUGS (4)
  1. ALCOHOL (ALCOHOL) [Suspect]
     Indication: PRODUCT USED FOR UNKNOWN INDICATION
     Dosage: DF
  2. QUETIAPINE [Concomitant]
  3. VENLAFAXINE [Suspect]
     Indication: PRODUCT USED FOR UNKNOWN INDICATION
     Dosage: 20 G, ONE TIME DOSE ORAL, 225 MG QD
     Route: 048
  4. DIAZEPAM [Concomitant]

REACTIONS (10)
  - HALLUCINATION [None]
  - ACUTE RESPIRATORY DISTRESS SYNDROME [None]
  - BEZOAR [None]
  - RHABDOMYOLYSIS [None]
  - SINUS TACHYCARDIA [None]
  - CONFUSIONAL STATE [None]
  - AGITATION [None]
  - CHEST X-RAY ABNORMAL [None]
  - DELIRIUM [None]
  - TOXICITY TO VARIOUS AGENTS [None]
